FAERS Safety Report 4323613-4 (Version None)
Quarter: 2004Q1

REPORT INFORMATION
  Report Type: 
  Country: None (occurrence: None)
  Receive Date: 20040322
  Receipt Date: 20040309
  Transmission Date: 20041129
  Serious: Yes (Hospitalization)
  Sender: FDA-Public Use
  Company Number: BE-JNJFOC-20040302338

PATIENT
  Age: 20 Year
  Sex: Female

DRUGS (2)
  1. REMICADE [Suspect]
     Indication: CROHN'S DISEASE
     Dosage: NO DRUG ADMINISTERED
  2. MEDROL [Concomitant]

REACTIONS (2)
  - CROHN'S DISEASE [None]
  - DISEASE RECURRENCE [None]
